FAERS Safety Report 4872507-4 (Version None)
Quarter: 2005Q4

REPORT INFORMATION
  Report Type: 
  Country: None (occurrence: None)
  Receive Date: 20051230
  Receipt Date: 20051230
  Transmission Date: 20060501
  Serious: Yes (Other)
  Sender: FDA-Public Use
  Company Number: None

PATIENT

DRUGS (2)
  1. PARKERDALE TUBERCULIN PPURIFIED PROTEIN DERIVATIVE [Suspect]
     Indication: TUBERCULIN TEST
     Dosage: 5TU FOREARM INTRADERMAL
     Route: 023
  2. PARKERDALE TUBERCULIN PPURIFIED PROTEIN DERIVATIVE [Suspect]

REACTIONS (5)
  - FALSE POSITIVE TUBERCULOSIS TEST [None]
  - INJECTION SITE DISCOMFORT [None]
  - INJECTION SITE ERYTHEMA [None]
  - INJECTION SITE IRRITATION [None]
  - PHARMACEUTICAL PRODUCT COMPLAINT [None]
